FAERS Safety Report 5059747-9 (Version None)
Quarter: 2006Q3

REPORT INFORMATION
  Report Type: 
  Country: None (occurrence: None)
  Receive Date: 20060724
  Receipt Date: 20060517
  Transmission Date: 20061208
  Serious: Yes (Other)
  Sender: FDA-Public Use
  Company Number: US-BRISTOL-MYERS SQUIBB COMPANY-13380464

PATIENT
  Age: 40 Year
  Sex: Male
  Weight: 83 kg

DRUGS (1)
  1. KENALOG-40 [Suspect]
     Dates: start: 20060417, end: 20060417

REACTIONS (3)
  - ATROPHY [None]
  - PALPITATIONS [None]
  - SENSORY LOSS [None]
